FAERS Safety Report 20994998 (Version 1)
Quarter: 2022Q2

REPORT INFORMATION
  Report Type: Spontaneous
  Country: US (occurrence: US)
  Receive Date: 20220622
  Receipt Date: 20220622
  Transmission Date: 20220721
  Serious: No
  Sender: FDA-Public Use
  Company Number: US-BRISTOL-MYERS SQUIBB COMPANY-2022-055701

PATIENT
  Age: 68 Year
  Sex: Female
  Weight: 127 kg

DRUGS (1)
  1. REVLIMID [Suspect]
     Active Substance: LENALIDOMIDE
     Indication: Myelodysplastic syndrome
     Dosage: FREQ - 3 WEEKS, 1 WEEK OFF
     Route: 048

REACTIONS (5)
  - Sinusitis [Unknown]
  - Throat irritation [Unknown]
  - Nasal congestion [Unknown]
  - Abnormal dreams [Unknown]
  - Incontinence [Unknown]
